FAERS Safety Report 7764567-8 (Version None)
Quarter: 2011Q3

REPORT INFORMATION
  Report Type: 
  Country: None (occurrence: None)
  Receive Date: 20110921
  Receipt Date: 20110915
  Transmission Date: 20111222
  Serious: Yes (Hospitalization, Other)
  Sender: FDA-Public Use
  Company Number: GB-PFIZER INC-2011219289

PATIENT
  Age: 37 Year
  Sex: Male

DRUGS (5)
  1. OXYCODONE [Concomitant]
     Indication: PAIN IN EXTREMITY
     Dosage: 40 MG, 2X/DAY
     Route: 048
     Dates: start: 20110413
  2. ETORICOXIB [Concomitant]
     Indication: PAIN IN EXTREMITY
     Dosage: 60 MG, 1X/DAY
     Route: 048
     Dates: start: 20110116
  3. LYRICA [Suspect]
     Dosage: 150 MG, 2X/DAY
     Route: 048
     Dates: start: 20110823, end: 20110827
  4. LYRICA [Suspect]
     Indication: PAIN IN EXTREMITY
     Dosage: 75 MG, 2X/DAY
     Route: 048
     Dates: start: 20110707, end: 20110822
  5. AMITRIPTYLINE [Concomitant]
     Indication: PAIN IN EXTREMITY
     Dosage: 20 MG, 1X/DAY
     Route: 048
     Dates: start: 20110707

REACTIONS (4)
  - PETIT MAL EPILEPSY [None]
  - SYNCOPE [None]
  - HEADACHE [None]
  - CONFUSIONAL STATE [None]
